FAERS Safety Report 4987123-3 (Version None)
Quarter: 2006Q2

REPORT INFORMATION
  Report Type: 
  Country: None (occurrence: None)
  Receive Date: 20060501
  Receipt Date: 20060426
  Transmission Date: 20061013
  Serious: Yes (Other)
  Sender: FDA-Public Use
  Company Number: 2006AP01981

PATIENT
  Age: 78 Year
  Sex: Female

DRUGS (1)
  1. OMEPRAL [Suspect]
     Route: 048
     Dates: start: 20040501, end: 20041201

REACTIONS (2)
  - AGRANULOCYTOSIS [None]
  - PNEUMONIA [None]
